FAERS Safety Report 5788003-6 (Version None)
Quarter: 2008Q2

REPORT INFORMATION
  Report Type: 
  Country: None (occurrence: None)
  Receive Date: 20080624
  Receipt Date: 20080115
  Transmission Date: 20081010
  Serious: Yes (Other)
  Sender: FDA-Public Use
  Company Number: WWISSUE-143

PATIENT
  Sex: Male

DRUGS (3)
  1. LITHIUM CARBONATE ER TABLETS, 450 MG/WEST-WARD [Suspect]
     Dates: start: 20060601, end: 20071201
  2. MYMCYCLINE - ANTIBIOTIC [Concomitant]
  3. MIRALAX - BULK LAXATIVE [Concomitant]

REACTIONS (1)
  - DRUG LEVEL DECREASED [None]
